FAERS Safety Report 6986123-1 (Version None)
Quarter: 2010Q3

REPORT INFORMATION
  Report Type: 
  Country: None (occurrence: None)
  Receive Date: 20100910
  Receipt Date: 20100903
  Transmission Date: 20110219
  Serious: Yes (Life-Threatening)
  Sender: FDA-Public Use
  Company Number: 688316

PATIENT
  Age: 70 Year
  Sex: Female

DRUGS (1)
  1. CARBOPLATIN [Suspect]
     Indication: OVARIAN CANCER
     Dosage: 350 MG MILLIGRAM(S)
     Dates: start: 20100706, end: 20100806

REACTIONS (2)
  - DRUG HYPERSENSITIVITY [None]
  - INFUSION RELATED REACTION [None]
